FAERS Safety Report 7643869-X (Version None)
Quarter: 2011Q3

REPORT INFORMATION
  Report Type: 
  Country: None (occurrence: None)
  Receive Date: 20110729
  Receipt Date: 20101007
  Transmission Date: 20111222
  Serious: No
  Sender: FDA-Public Use
  Company Number: US-GLAXOSMITHKLINE-A0885447A

PATIENT
  Age: 55 Year
  Sex: Female

DRUGS (5)
  1. SUMATRIPTAN SUCCINATE [Suspect]
     Indication: OPHTHALMOPLEGIC MIGRAINE
     Route: 048
     Dates: start: 20091101
  2. NO CONCURRENT MEDICATION [Concomitant]
  3. EXCEDRIN (MIGRAINE) [Concomitant]
  4. TYLENOL-500 [Concomitant]
  5. IBUPROFEN [Concomitant]

REACTIONS (2)
  - SOMNOLENCE [None]
  - DRUG INEFFECTIVE [None]
